FAERS Safety Report 8208925 (Version 2)
Quarter: 2013Q2

REPORT INFORMATION
  Report Type: Spontaneous
  Country: US (occurrence: US)
  Receive Date: 20111028
  Receipt Date: 20130503
  Transmission Date: 20140414
  Serious: Yes (Other)
  Sender: FDA-Public Use
  Company Number: US-ROCHE-791192

PATIENT
  Age: 21 Year
  Sex: Female
  Weight: 54.48 kg

DRUGS (3)
  1. ACCUTANE [Suspect]
     Indication: ACNE
     Route: 065
     Dates: start: 200106, end: 200201
  2. ALBUTEROL INHALER [Concomitant]
     Indication: ASTHMA
  3. ORTHO TRI-CYCLEN [Concomitant]
     Indication: CONTRACEPTION

REACTIONS (4)
  - Colitis ulcerative [Unknown]
  - Inflammatory bowel disease [Unknown]
  - Emotional distress [Unknown]
  - Lip dry [Unknown]
